FAERS Safety Report 17883577 (Version 3)
Quarter: 2021Q3

REPORT INFORMATION
  Report Type: Report from Study
  Country: US (occurrence: US)
  Receive Date: 20200611
  Receipt Date: 20210815
  Transmission Date: 20211014
  Serious: Yes (Death, Hospitalization, Other)
  Sender: FDA-Public Use
  Company Number: US-ASTRAZENECA-2020SE74639

PATIENT
  Age: 25097 Day
  Sex: Male
  Weight: 121.1 kg

DRUGS (5)
  1. GLIPIZIDE. [Concomitant]
     Active Substance: GLIPIZIDE
  2. LISINOPRIL. [Suspect]
     Active Substance: LISINOPRIL
     Indication: RENAL IMPAIRMENT
     Route: 048
     Dates: end: 20200521
  3. CALQUENCE [Suspect]
     Active Substance: ACALABRUTINIB
     Indication: MANTLE CELL LYMPHOMA
     Route: 048
     Dates: start: 20200414, end: 20200518
  4. PRAVASTATIN. [Concomitant]
     Active Substance: PRAVASTATIN
  5. METFORMIN [Concomitant]
     Active Substance: METFORMIN HYDROCHLORIDE
     Indication: DIABETES MELLITUS
     Dosage: 1000 ,TWO TIMES DAILY
     Dates: start: 1993, end: 20200518

REACTIONS (13)
  - Renal failure [Fatal]
  - Malignant neoplasm progression [Unknown]
  - Dyspnoea [Unknown]
  - Lymphoma [Unknown]
  - Blood glucose decreased [Unknown]
  - Heart rate increased [Unknown]
  - SARS-CoV-2 test negative [Unknown]
  - Pleural effusion [Unknown]
  - Mass [Unknown]
  - Feeding disorder [Unknown]
  - Pneumonia staphylococcal [Unknown]
  - Blood pressure abnormal [Unknown]
  - Fluid retention [Unknown]

NARRATIVE: CASE EVENT DATE: 20180426
